FAERS Safety Report 7200333-X (Version None)
Quarter: 2010Q4

REPORT INFORMATION
  Report Type: 
  Country: None (occurrence: None)
  Receive Date: 20101228
  Receipt Date: 20101217
  Transmission Date: 20110411
  Serious: Yes (Hospitalization)
  Sender: FDA-Public Use
  Company Number: US-JNJFOC-20101206586

PATIENT
  Age: 18 Year
  Sex: Female
  Weight: 48.5 kg

DRUGS (5)
  1. ACETAMINOPHEN [Suspect]
     Route: 048
  2. ACETAMINOPHEN [Suspect]
     Indication: PRODUCT USED FOR UNKNOWN INDICATION
     Route: 048
  3. ASPIRIN [Suspect]
     Indication: PRODUCT USED FOR UNKNOWN INDICATION
     Dosage: TOOK 13000-19500MG
  4. PHENAZOPYRIDINE [Concomitant]
     Indication: DYSURIA
  5. CRANBERRY PILL [Concomitant]
     Indication: DYSURIA

REACTIONS (8)
  - ABDOMINAL PAIN UPPER [None]
  - HAEMATEMESIS [None]
  - METABOLIC ACIDOSIS [None]
  - MULTIPLE DRUG OVERDOSE INTENTIONAL [None]
  - NAUSEA [None]
  - RESPIRATORY ALKALOSIS [None]
  - SELF INJURIOUS BEHAVIOUR [None]
  - TINNITUS [None]
